FAERS Safety Report 15208051 (Version 1)
Quarter: 2018Q3

REPORT INFORMATION
  Report Type: Spontaneous
  Country: ES (occurrence: ES)
  Receive Date: 20180727
  Receipt Date: 20180727
  Transmission Date: 20181010
  Serious: Yes (Hospitalization)
  Sender: FDA-Public Use
  Company Number: ES-FERRINGPH-2018FE04008

PATIENT

DRUGS (3)
  1. EUTIROX [Concomitant]
     Active Substance: LEVOTHYROXINE SODIUM
     Indication: HYPOTHYROIDISM
     Dosage: 1 DF, DAILY
     Route: 048
  2. HIDROCORTISONA                     /00028601/ [Concomitant]
     Active Substance: HYDROCORTISONE
     Indication: ADRENAL INSUFFICIENCY
     Dosage: 25 MG, DAILY
     Route: 048
  3. DESMOPRESSIN [Suspect]
     Active Substance: DESMOPRESSIN
     Indication: DIABETES INSIPIDUS
     Dosage: 0.2 MG, 2 TIMES DAILY
     Route: 045
     Dates: start: 20171015

REACTIONS (4)
  - Status epilepticus [Recovered/Resolved]
  - Overdose [Unknown]
  - Inappropriate antidiuretic hormone secretion [Recovered/Resolved]
  - Contraindicated product administered [Unknown]

NARRATIVE: CASE EVENT DATE: 20171015
